FAERS Safety Report 10093665 (Version 1)
Quarter: 2014Q2

REPORT INFORMATION
  Report Type: Spontaneous
  Country: US (occurrence: US)
  Receive Date: 20140421
  Receipt Date: 20140421
  Transmission Date: 20141212
  Serious: No
  Sender: FDA-Public Use
  Company Number: US-SANOFI-AVENTIS-2013SA080551

PATIENT
  Sex: Female

DRUGS (7)
  1. ALLEGRA [Suspect]
     Route: 065
  2. PREVACID [Concomitant]
  3. BENICAR [Concomitant]
  4. MULTIVITAMINS [Concomitant]
  5. ASPIRIN [Concomitant]
  6. CALCIUM [Concomitant]
  7. VITAMIN D [Concomitant]

REACTIONS (3)
  - Wrong technique in drug usage process [Unknown]
  - Wrong drug administered [Unknown]
  - Drug dose omission [Unknown]
